FAERS Safety Report 24271552 (Version 1)
Quarter: 2024Q3

REPORT INFORMATION
  Report Type: Spontaneous
  Country: US (occurrence: US)
  Receive Date: 20240901
  Receipt Date: 20240901
  Transmission Date: 20241017
  Serious: Yes (Other)
  Sender: TAKEDA
  Company Number: US-TAKEDA-2024TUS086228

PATIENT
  Sex: Male

DRUGS (2)
  1. VYVANSE [Suspect]
     Active Substance: LISDEXAMFETAMINE DIMESYLATE
     Indication: Product used for unknown indication
     Dosage: UNK
     Route: 065
  2. GENOTROPIN [Suspect]
     Active Substance: SOMATROPIN
     Indication: Growth hormone deficiency
     Dosage: 1.8 MILLIGRAM, QD
     Route: 058

REACTIONS (4)
  - Growth hormone deficiency [Unknown]
  - Hypopituitarism [Unknown]
  - Short stature [Unknown]
  - Musculoskeletal pain [Unknown]
